FAERS Safety Report 10572935 (Version 2)
Quarter: 2014Q4

REPORT INFORMATION
  Report Type: Spontaneous
  Country: US (occurrence: None)
  Receive Date: 20141106
  Receipt Date: 20141120
  Transmission Date: 20150529
  Serious: Yes (Other)
  Sender: FDA-Public Use
  Company Number: 2014-US-007308

PATIENT
  Age: 54 Year
  Sex: Female
  Weight: 61.2 kg

DRUGS (3)
  1. ALLEGRA (FEXOFENADINE HYDROCHLORIDE) [Concomitant]
  2. VYVANSE (LISDEXAMFETAMINE DIMESILATE) [Concomitant]
  3. XYREM [Suspect]
     Active Substance: SODIUM OXYBATE
     Indication: HYPERSOMNIA
     Route: 048
     Dates: start: 200611, end: 200612

REACTIONS (7)
  - Burns third degree [None]
  - Fall [None]
  - Prescribed overdose [None]
  - Rib fracture [None]
  - Incorrect dose administered [None]
  - Off label use [None]
  - Somnambulism [None]

NARRATIVE: CASE EVENT DATE: 20140609
